FAERS Safety Report 24138130 (Version 1)
Quarter: 2024Q3

REPORT INFORMATION
  Report Type: Spontaneous
  Country: US (occurrence: US)
  Receive Date: 20240725
  Receipt Date: 20240725
  Transmission Date: 20241017
  Serious: No
  Sender: SANOFI AVENTIS
  Company Number: US-SA-SAC20240722000526

PATIENT
  Age: 17 Year
  Sex: Female

DRUGS (2)
  1. RIFADIN [Suspect]
     Active Substance: RIFAMPIN
     Dosage: UNK
     Route: 065
  2. SPRINTEC [Concomitant]
     Active Substance: ETHINYL ESTRADIOL\NORGESTIMATE

REACTIONS (7)
  - Abdominal pain upper [Unknown]
  - Diarrhoea [Unknown]
  - Pollakiuria [Unknown]
  - Frequent bowel movements [Unknown]
  - Heavy menstrual bleeding [Unknown]
  - Nausea [Unknown]
  - Pruritus [Unknown]

NARRATIVE: CASE EVENT DATE: 20240607
